FAERS Safety Report 7248500-3 (Version None)
Quarter: 2011Q1

REPORT INFORMATION
  Report Type: 
  Country: None (occurrence: None)
  Receive Date: 20110127
  Receipt Date: 20110125
  Transmission Date: 20110831
  Serious: Yes (Other)
  Sender: FDA-Public Use
  Company Number: US-AMGEN-QUU398195

PATIENT
  Age: 47 Year
  Sex: Male

DRUGS (5)
  1. NPLATE [Suspect]
     Indication: IDIOPATHIC THROMBOCYTOPENIC PURPURA
     Dosage: 50 A?G, UNK
     Dates: start: 20080529, end: 20100918
  2. NPLATE [Suspect]
     Dates: start: 20080523
  3. IMMUNOGLOBULINS [Concomitant]
     Dosage: UNK UNK, UNK
     Dates: start: 20091026
  4. CORTICOSTEROID NOS [Concomitant]
     Dosage: UNK UNK, UNK
     Dates: start: 20080528
  5. RITUXIMAB [Concomitant]
     Dosage: UNK UNK, UNK
     Dates: start: 20090123, end: 20090213

REACTIONS (3)
  - CHOROIDAL INFARCTION [None]
  - EMBOLISM ARTERIAL [None]
  - THERAPEUTIC RESPONSE DECREASED [None]
